FAERS Safety Report 13434269 (Version 1)
Quarter: 2017Q2

REPORT INFORMATION
  Report Type: Spontaneous
  Country: US (occurrence: US)
  Receive Date: 20170412
  Receipt Date: 20170412
  Transmission Date: 20170830
  Serious: No
  Sender: FDA-Public Use
  Company Number: None

PATIENT
  Age: 60 Year
  Sex: Female

DRUGS (1)
  1. SUTENT [Suspect]
     Active Substance: SUNITINIB MALATE
     Indication: RENAL CANCER
     Dosage: FREQUENCY - DAILY FOR TWO WEEKS THE ONE WEEK OFF
     Route: 048
     Dates: start: 20161116

REACTIONS (5)
  - Gait disturbance [None]
  - Skin discolouration [None]
  - Pain [None]
  - Nausea [None]
  - Dry skin [None]

NARRATIVE: CASE EVENT DATE: 20170327
